FAERS Safety Report 14382905 (Version 5)
Quarter: 2018Q2

REPORT INFORMATION
  Report Type: Report from Study
  Country: None (occurrence: US)
  Receive Date: 20180114
  Receipt Date: 20180506
  Transmission Date: 20180711
  Serious: Yes (Other)
  Sender: FDA-Public Use
  Company Number: US-ABBVIE-18K-163-2216281-00

PATIENT
  Age: 70 Year
  Sex: Female
  Weight: 63.56 kg

DRUGS (11)
  1. HUMIRA [Suspect]
     Active Substance: ADALIMUMAB
     Indication: CROHN^S DISEASE
     Route: 058
     Dates: start: 20170514
  2. LOMOTIL [Concomitant]
     Active Substance: ATROPINE SULFATE\DIPHENOXYLATE HYDROCHLORIDE
     Indication: DIARRHOEA
  3. ASPIRIN. [Concomitant]
     Active Substance: ASPIRIN
     Indication: PRODUCT USED FOR UNKNOWN INDICATION
  4. CALCITRIOL. [Concomitant]
     Active Substance: CALCITRIOL
     Indication: NEPHROPATHY
  5. BUDESONIDE. [Concomitant]
     Active Substance: BUDESONIDE
     Indication: CROHN^S DISEASE
  6. HUMIRA [Suspect]
     Active Substance: ADALIMUMAB
     Route: 058
  7. VITAMIN B12 [Concomitant]
     Active Substance: CYANOCOBALAMIN
     Indication: ANAEMIA
  8. POTASSIUM [Concomitant]
     Active Substance: POTASSIUM
     Indication: MINERAL SUPPLEMENTATION
  9. VITAMIN D [Concomitant]
     Active Substance: CHOLECALCIFEROL
     Indication: PRODUCT USED FOR UNKNOWN INDICATION
  10. SODIUM BICARBONATE. [Concomitant]
     Active Substance: SODIUM BICARBONATE
     Indication: HYPOTENSION
  11. ZENPEP [Concomitant]
     Active Substance: PANCRELIPASE AMYLASE\PANCRELIPASE LIPASE\PANCRELIPASE PROTEASE
     Indication: MALABSORPTION

REACTIONS (14)
  - Iliotibial band syndrome [Recovered/Resolved]
  - Frequent bowel movements [Recovered/Resolved]
  - Weight increased [Not Recovered/Not Resolved]
  - Urethral perforation [Unknown]
  - Dehydration [Recovering/Resolving]
  - Nephrolithiasis [Unknown]
  - Blood magnesium decreased [Recovering/Resolving]
  - Joint swelling [Recovering/Resolving]
  - Plantar fasciitis [Unknown]
  - Gout [Recovering/Resolving]
  - Pain in extremity [Unknown]
  - Urinary bladder rupture [Unknown]
  - Blood creatinine increased [Unknown]
  - Diarrhoea [Recovered/Resolved]

NARRATIVE: CASE EVENT DATE: 201801
